FAERS Safety Report 5290295-7 (Version None)
Quarter: 2007Q2

REPORT INFORMATION
  Report Type: 
  Country: None (occurrence: None)
  Receive Date: 20070409
  Receipt Date: 20070329
  Transmission Date: 20071010
  Serious: Yes (Other)
  Sender: FDA-Public Use
  Company Number: TW-JNJFOC-20070307206

PATIENT
  Sex: Female

DRUGS (5)
  1. CHLORZOXAZONE W/ACETAMINOPHEN [Suspect]
     Indication: MUSCLE RELAXANT THERAPY
  2. CHLORZOXAZONE [Suspect]
     Indication: DRUG USE FOR UNKNOWN INDICATION
  3. ACETAMINOPHEN W/CHLORZOXAZONE/CAFFEINE/THIAMINE [Suspect]
     Indication: DRUG USE FOR UNKNOWN INDICATION
  4. AMLODIPINE [Concomitant]
  5. COLCHICINE [Concomitant]

REACTIONS (1)
  - PALPITATIONS [None]
